FAERS Safety Report 15339104 (Version 1)
Quarter: 2018Q3

REPORT INFORMATION
  Report Type: Spontaneous
  Country: US (occurrence: US)
  Receive Date: 20180831
  Receipt Date: 20180831
  Transmission Date: 20181010
  Serious: No
  Sender: FDA-Public Use
  Company Number: PHEH2018US035687

PATIENT
  Age: 62 Year
  Sex: Female

DRUGS (1)
  1. LORAZEPAM SANDOZ [Suspect]
     Active Substance: LORAZEPAM
     Indication: PRODUCT USED FOR UNKNOWN INDICATION
     Dosage: UNK UNK, BID
     Route: 048

REACTIONS (3)
  - Incorrect dose administered [Unknown]
  - Malaise [Unknown]
  - Dyspepsia [Not Recovered/Not Resolved]
